FAERS Safety Report 19792454 (Version 1)
Quarter: 2021Q3

REPORT INFORMATION
  Report Type: Report from Study
  Country: US (occurrence: US)
  Receive Date: 20210906
  Receipt Date: 20210906
  Transmission Date: 20211014
  Serious: Yes (Other)
  Sender: FDA-Public Use
  Company Number: US-PTC THERAPEUTICS, INC.-US-2021PTC001086

PATIENT
  Sex: Male
  Weight: 44 kg

DRUGS (1)
  1. EMFLAZA [Suspect]
     Active Substance: DEFLAZACORT
     Indication: MUSCULAR DYSTROPHY
     Dosage: 6 MG (3 TABLETS), QD
     Route: 048

REACTIONS (2)
  - Growth retardation [Unknown]
  - Weight decreased [Unknown]
